FAERS Safety Report 17987927 (Version 2)
Quarter: 2020Q3

REPORT INFORMATION
  Report Type: Spontaneous
  Country: US (occurrence: US)
  Receive Date: 20200707
  Receipt Date: 20200731
  Transmission Date: 20201103
  Serious: No
  Sender: FDA-Public Use
  Company Number: US-TEVA-2020-US-1796366

PATIENT
  Sex: Female

DRUGS (1)
  1. METFORMIN HYDROCHLORIDE TEVA [Suspect]
     Active Substance: METFORMIN HYDROCHLORIDE
     Route: 065

REACTIONS (4)
  - Weight decreased [Unknown]
  - Therapy interrupted [Unknown]
  - Blood glucose increased [Unknown]
  - Stress [Unknown]
